FAERS Safety Report 14413454 (Version 2)
Quarter: 2018Q2

REPORT INFORMATION
  Report Type: Spontaneous
  Country: JP (occurrence: JP)
  Receive Date: 20180119
  Receipt Date: 20180412
  Transmission Date: 20180711
  Serious: Yes (Death, Life-Threatening, Hospitalization, Other)
  Sender: FDA-Public Use
  Company Number: JP-MYLANLABS-2018M1005419

PATIENT
  Age: 77 Year
  Sex: Male

DRUGS (2)
  1. EPINEPHRINE. [Suspect]
     Active Substance: EPINEPHRINE
     Indication: VENTRICULAR FIBRILLATION
     Dosage: 5 MG
     Route: 042
  2. EPINEPHRINE. [Suspect]
     Active Substance: EPINEPHRINE
     Indication: RESUSCITATION
     Dosage: 5 MG, UNK
     Route: 042

REACTIONS (6)
  - Pulseless electrical activity [Fatal]
  - Drug ineffective [Unknown]
  - Acute myocardial infarction [Fatal]
  - Arteriospasm coronary [Fatal]
  - Condition aggravated [Fatal]
  - Haemodynamic instability [Fatal]
